FAERS Safety Report 16935067 (Version 5)
Quarter: 2021Q2

REPORT INFORMATION
  Report Type: Spontaneous
  Country: US (occurrence: US)
  Receive Date: 20191018
  Receipt Date: 20210607
  Transmission Date: 20210716
  Serious: No
  Sender: FDA-Public Use
  Company Number: US-PFIZER INC-2018208952

PATIENT
  Age: 61 Year
  Sex: Female

DRUGS (3)
  1. LYRICA [Suspect]
     Active Substance: PREGABALIN
     Indication: FIBROMYALGIA
  2. LYRICA [Suspect]
     Active Substance: PREGABALIN
     Indication: NEURALGIA
     Dosage: 3 DF, DAILY
  3. LYRICA [Suspect]
     Active Substance: PREGABALIN
     Indication: POST HERPETIC NEURALGIA
     Dosage: 2 DF, DAILY

REACTIONS (3)
  - Pyrexia [Recovered/Resolved]
  - Intentional product use issue [Unknown]
  - Fear [Unknown]

NARRATIVE: CASE EVENT DATE: 202008
